FAERS Safety Report 8565027-7 (Version None)
Quarter: 2012Q3

REPORT INFORMATION
  Report Type: 
  Country: None (occurrence: None)
  Receive Date: 20120803
  Receipt Date: 20120731
  Transmission Date: 20120928
  Serious: No
  Sender: FDA-Public Use
  Company Number: US-PFIZER INC-2012185883

PATIENT
  Sex: Female

DRUGS (3)
  1. OXYCONTIN [Suspect]
     Indication: BACK PAIN
     Dosage: 10 MG, EVERY 12 HOURS
  2. OXYCODONE HCL [Suspect]
     Indication: BACK PAIN
     Dosage: 1 UNK, EVERY SIX HOURS
  3. LYRICA [Suspect]
     Indication: BACK PAIN
     Dosage: 275 MG, EVERY 12 HOURS

REACTIONS (1)
  - DRUG INEFFECTIVE [None]
